FAERS Safety Report 16630437 (Version 4)
Quarter: 2019Q4

REPORT INFORMATION
  Report Type: Report from Study
  Country: US (occurrence: US)
  Receive Date: 20190725
  Receipt Date: 20191129
  Transmission Date: 20200122
  Serious: Yes (Other)
  Sender: FDA-Public Use
  Company Number: US-ROCHE-2355395

PATIENT
  Age: 24 Year
  Sex: Male
  Weight: 81.72 kg

DRUGS (10)
  1. OCREVUS [Suspect]
     Active Substance: OCRELIZUMAB
     Dosage: DATES OF OCREVUS INFUSIONS: 06/JUL/2018, 20/JUL/2018 AND 04/JAN/2019
     Route: 065
     Dates: start: 20180616
  2. CLONAZEPAM. [Concomitant]
     Active Substance: CLONAZEPAM
     Dosage: TWICE A DAILY
     Route: 048
     Dates: start: 2019
  3. CLONAZEPAM. [Concomitant]
     Active Substance: CLONAZEPAM
     Indication: ANXIETY
     Dosage: TWICE A DAY
     Route: 048
     Dates: start: 2019
  4. GABAPENTIN. [Concomitant]
     Active Substance: GABAPENTIN
     Dosage: TWICE A DAY
     Route: 048
     Dates: start: 2018
  5. CITALOPRAM [Concomitant]
     Active Substance: CITALOPRAM HYDROBROMIDE
     Dosage: 3 TABS EVERY DAY
     Route: 048
     Dates: start: 2016
  6. TOPIRAMATE. [Concomitant]
     Active Substance: TOPIRAMATE
     Indication: MIGRAINE
     Dosage: ONE BY MOUTH DAILY
     Route: 048
     Dates: start: 201812
  7. TOPIRAMATE. [Concomitant]
     Active Substance: TOPIRAMATE
     Dosage: 3 BY MOUTH NIGHTLY
     Route: 048
     Dates: start: 201812
  8. OCREVUS [Suspect]
     Active Substance: OCRELIZUMAB
     Indication: RELAPSING-REMITTING MULTIPLE SCLEROSIS
     Route: 065
     Dates: start: 20180606, end: 20190114
  9. BACLOFEN. [Concomitant]
     Active Substance: BACLOFEN
     Indication: TREMOR
     Dosage: 2 TABS THREE TIMES A DAY
     Route: 048
     Dates: start: 2018
  10. GABAPENTIN. [Concomitant]
     Active Substance: GABAPENTIN
     Indication: NEURALGIA
     Dosage: THREE TIMES A DAY
     Route: 048
     Dates: start: 2018

REACTIONS (7)
  - Cognitive disorder [Not Recovered/Not Resolved]
  - Urinary incontinence [Recovered/Resolved]
  - Systemic infection [Recovered/Resolved]
  - Multiple sclerosis [Unknown]
  - Paralysis [Unknown]
  - Paralysis [Recovered/Resolved]
  - Anal incontinence [Recovered/Resolved]

NARRATIVE: CASE EVENT DATE: 201812
